FAERS Safety Report 25103176 (Version 2)
Quarter: 2025Q1

REPORT INFORMATION
  Report Type: Spontaneous
  Country: JP (occurrence: JP)
  Receive Date: 20250321
  Receipt Date: 20250331
  Transmission Date: 20250409
  Serious: Yes (Death, Hospitalization)
  Sender: ASTELLAS
  Company Number: JP-ASTELLAS-2025-AER-013315

PATIENT
  Age: 7 Decade
  Sex: Male

DRUGS (3)
  1. PADCEV [Suspect]
     Active Substance: ENFORTUMAB VEDOTIN-EJFV
     Indication: Bladder cancer
     Route: 042
     Dates: start: 20250220
  2. LINAGLIPTIN [Concomitant]
     Active Substance: LINAGLIPTIN
     Indication: Product used for unknown indication
     Route: 048
  3. INSULIN NOS [Concomitant]
     Active Substance: INSULIN NOS
     Indication: Hyperglycaemia
     Route: 065

REACTIONS (4)
  - White blood cell count decreased [Fatal]
  - Neutrophil count decreased [Fatal]
  - Hyperglycaemia [Recovering/Resolving]
  - COVID-19 [Fatal]
